FAERS Safety Report 9424177 (Version 1)
Quarter: 2013Q3

REPORT INFORMATION
  Report Type: Spontaneous
  Country: BR (occurrence: BR)
  Receive Date: 20130729
  Receipt Date: 20130729
  Transmission Date: 20140515
  Serious: Yes (Hospitalization)
  Sender: FDA-Public Use
  Company Number: BR-AMGEN-BRASP2013052514

PATIENT
  Age: 71 Year
  Sex: Female
  Weight: 50 kg

DRUGS (1)
  1. ENBREL [Suspect]
     Indication: PRODUCT USED FOR UNKNOWN INDICATION
     Dosage: 50 MG, ONCE WEEKLY
     Route: 058
     Dates: start: 201302, end: 201302

REACTIONS (7)
  - Feeling abnormal [Unknown]
  - Swelling [Unknown]
  - Erythema [Unknown]
  - Burning sensation [Unknown]
  - Pyrexia [Unknown]
  - Salmonellosis [Unknown]
  - Injection site erythema [Recovered/Resolved]
